FAERS Safety Report 5095866-9 (Version None)
Quarter: 2006Q3

REPORT INFORMATION
  Report Type: 
  Country: None (occurrence: None)
  Receive Date: 20060726
  Receipt Date: 20060523
  Transmission Date: 20061208
  Serious: No
  Sender: FDA-Public Use
  Company Number: 012282

PATIENT
  Age: 52 Year
  Sex: Female

DRUGS (1)
  1. PRIALT [Suspect]
     Indication: PAIN
     Dosage: 0.13 UG, ONCE/HOUR, INTRATHECAL
     Route: 037
     Dates: start: 20051001

REACTIONS (2)
  - PARAESTHESIA ORAL [None]
  - TONGUE DISORDER [None]
